FAERS Safety Report 6965683-0 (Version None)
Quarter: 2010Q3

REPORT INFORMATION
  Report Type: 
  Country: None (occurrence: None)
  Receive Date: 20100903
  Receipt Date: 20100826
  Transmission Date: 20110219
  Serious: Yes (Hospitalization)
  Sender: FDA-Public Use
  Company Number: JP-ROCHE-721555

PATIENT
  Sex: Male
  Weight: 78 kg

DRUGS (2)
  1. PEGASYS [Suspect]
     Indication: HEPATITIS C
     Route: 058
     Dates: start: 20100325, end: 20100506
  2. GLYBURIDE [Concomitant]
     Route: 048

REACTIONS (1)
  - LACUNAR INFARCTION [None]
